FAERS Safety Report 22200263 (Version 1)
Quarter: 2023Q2

REPORT INFORMATION
  Report Type: Spontaneous
  Country: CN (occurrence: CN)
  Receive Date: 20230412
  Receipt Date: 20230412
  Transmission Date: 20230721
  Serious: Yes (Hospitalization)
  Sender: FDA-Public Use
  Company Number: CN-AMGEN-CHNSP2023061516

PATIENT
  Age: 48 Year
  Sex: Female
  Weight: 70 kg

DRUGS (7)
  1. KYPROLIS [Suspect]
     Active Substance: CARFILZOMIB
     Indication: Plasma cell myeloma
     Dosage: UNK
     Route: 042
     Dates: start: 20230203, end: 2023
  2. KYPROLIS [Suspect]
     Active Substance: CARFILZOMIB
     Dosage: 47 MILLIGRAM, D1-D2, D8-D9
     Route: 042
     Dates: start: 20230303, end: 20230311
  3. POMALIDOMIDE [Suspect]
     Active Substance: POMALIDOMIDE
     Indication: Plasma cell myeloma
     Dosage: UNK
     Route: 048
     Dates: start: 20230203, end: 2023
  4. POMALIDOMIDE [Suspect]
     Active Substance: POMALIDOMIDE
     Dosage: 4 MILLIGRAM, D1-D21
     Route: 048
     Dates: start: 20230303, end: 20230315
  5. DEXAMETHASONE SODIUM PHOSPHATE [Suspect]
     Active Substance: DEXAMETHASONE SODIUM PHOSPHATE
     Indication: Prophylaxis
     Dosage: UNK
     Route: 042
     Dates: start: 20230203, end: 2023
  6. DEXAMETHASONE SODIUM PHOSPHATE [Suspect]
     Active Substance: DEXAMETHASONE SODIUM PHOSPHATE
     Dosage: 20 MILLIGRAM, D1-D2, D8-D9
     Route: 042
     Dates: start: 20230303, end: 20230311
  7. ONDANSETRON HYDROCHLORIDE [Concomitant]
     Active Substance: ONDANSETRON HYDROCHLORIDE
     Indication: Prophylaxis
     Dosage: 8 MILLIGRAM, QD
     Route: 042
     Dates: start: 20230303, end: 20230311

REACTIONS (2)
  - Myelosuppression [Recovering/Resolving]
  - Hypocalcaemia [Recovered/Resolved]

NARRATIVE: CASE EVENT DATE: 20230309
